FAERS Safety Report 10266107 (Version 1)
Quarter: 2014Q2

REPORT INFORMATION
  Report Type: Spontaneous
  Country: SE (occurrence: SE)
  Receive Date: 20140627
  Receipt Date: 20140627
  Transmission Date: 20141212
  Serious: Yes (Other)
  Sender: FDA-Public Use
  Company Number: SE-ELI_LILLY_AND_COMPANY-SE201406007458

PATIENT
  Age: 79 Year
  Sex: Female

DRUGS (2)
  1. ZYPADHERA [Suspect]
     Indication: SCHIZOPHRENIA
     Dosage: 405 MG, EVERY 4 WEEKS
     Route: 065
  2. ZYPADHERA [Suspect]
     Dosage: 300 MG, EVERY 4 WEEKS
     Route: 065

REACTIONS (15)
  - Breast cancer [Unknown]
  - Benign breast neoplasm [Unknown]
  - Herpes zoster [Unknown]
  - Breast pain [Unknown]
  - Cardiovascular disorder [Unknown]
  - Lipids abnormal [Unknown]
  - Hypotension [Unknown]
  - Heart rate increased [Unknown]
  - Paraesthesia [Unknown]
  - Pain in extremity [Unknown]
  - Dizziness [Unknown]
  - Dry mouth [Unknown]
  - Rash [Unknown]
  - Alopecia [Unknown]
  - Constipation [Unknown]
